FAERS Safety Report 4513246-9 (Version None)
Quarter: 2004Q4

REPORT INFORMATION
  Report Type: 
  Country: None (occurrence: None)
  Receive Date: 20041130
  Receipt Date: 20040908
  Transmission Date: 20050328
  Serious: Yes (Hospitalization)
  Sender: FDA-Public Use
  Company Number: US-ROCHE-380474

PATIENT
  Age: 51 Year
  Sex: Male
  Weight: 113.4 kg

DRUGS (7)
  1. PEGASYS [Suspect]
     Indication: HEPATITIS C
     Route: 058
     Dates: start: 20040701, end: 20040920
  2. COPEGUS [Suspect]
     Indication: HEPATITIS C
     Route: 048
     Dates: start: 20040701, end: 20040920
  3. TRICOR [Concomitant]
     Route: 048
  4. UNIDENTIFIED [Concomitant]
     Indication: HYPERTENSION
     Dosage: DRUG NAME REPORTED AS ANTOL.
     Route: 048
  5. ZOLOFT [Concomitant]
     Indication: DEPRESSION
     Route: 048
  6. ACIPHEX [Concomitant]
     Route: 048
  7. ATENOLOL [Concomitant]
     Route: 048

REACTIONS (19)
  - ABNORMAL SENSATION IN EYE [None]
  - ARTHRALGIA [None]
  - BACK PAIN [None]
  - BLOOD IRON ABNORMAL [None]
  - CHEST PAIN [None]
  - CONSTIPATION [None]
  - DIARRHOEA [None]
  - DIZZINESS [None]
  - DYSPEPSIA [None]
  - DYSPNOEA [None]
  - FATIGUE [None]
  - HEADACHE [None]
  - INSOMNIA [None]
  - LOSS OF CONSCIOUSNESS [None]
  - MYOCARDIAL INFARCTION [None]
  - RED BLOOD CELL COUNT DECREASED [None]
  - SENSATION OF PRESSURE [None]
  - VENTRICULAR HYPERTROPHY [None]
  - VISION BLURRED [None]
